FAERS Safety Report 9281557 (Version 2)
Quarter: 2013Q2

REPORT INFORMATION
  Report Type: Spontaneous
  Country: US (occurrence: US)
  Receive Date: 20130509
  Receipt Date: 20130509
  Transmission Date: 20140414
  Serious: Yes (Hospitalization, Other)
  Sender: FDA-Public Use
  Company Number: US-ALEXION-A201300522

PATIENT
  Age: 76 Year
  Sex: Male

DRUGS (3)
  1. SOLIRIS 300MG [Suspect]
     Indication: PAROXYSMAL NOCTURNAL HAEMOGLOBINURIA
     Dosage: UNK
     Route: 042
  2. INFLUENZA VACCINE [Suspect]
     Indication: IMMUNISATION
     Dosage: UNK
     Dates: start: 20121026, end: 20121026
  3. PNEUMOCOCCAL VACCINE POLYVALENT [Suspect]
     Indication: IMMUNISATION
     Dosage: UNK
     Dates: start: 20121026, end: 20121026

REACTIONS (3)
  - Sepsis syndrome [Recovered/Resolved]
  - Haemoglobin decreased [Recovered/Resolved]
  - Vaccination site discomfort [Unknown]
